FAERS Safety Report 4718801-9 (Version None)
Quarter: 2005Q3

REPORT INFORMATION
  Report Type: 
  Country: None (occurrence: None)
  Receive Date: 20050720
  Receipt Date: 19980820
  Transmission Date: 20060218
  Serious: Yes (Death, Life-Threatening, Hospitalization)
  Sender: FDA-Public Use
  Company Number: DE-AMGEN-98080027

PATIENT
  Sex: Male

DRUGS (4)
  1. ENBREL [Suspect]
     Indication: RHEUMATOID ARTHRITIS
     Route: 058
     Dates: start: 19980714, end: 19980814
  2. ENBREL [Suspect]
  3. PREDNISOLONE [Suspect]
     Route: 048
  4. DICLOFENAC SODIUM [Suspect]
     Route: 048

REACTIONS (10)
  - CARDIAC ARREST [None]
  - CARDIO-RESPIRATORY ARREST [None]
  - DIVERTICULITIS [None]
  - HAEMATEMESIS [None]
  - INTESTINAL PERFORATION [None]
  - MELAENA [None]
  - PERITONITIS [None]
  - POSTOPERATIVE INFECTION [None]
  - RESPIRATORY FAILURE [None]
  - SEPSIS [None]
